FAERS Safety Report 6867027-1 (Version None)
Quarter: 2010Q2

REPORT INFORMATION
  Report Type: 
  Country: None (occurrence: None)
  Receive Date: 20100610
  Receipt Date: 20100122
  Transmission Date: 20101027
  Serious: No
  Sender: FDA-Public Use
  Company Number: 2010SP005416

PATIENT
  Sex: Female

DRUGS (1)
  1. SAPHRIS [Suspect]
     Indication: BIPOLAR I DISORDER
     Dosage: 5 MG;BID
     Dates: start: 20100111, end: 20100115

REACTIONS (3)
  - ARTHRALGIA [None]
  - GAIT DISTURBANCE [None]
  - MUSCULOSKELETAL STIFFNESS [None]
